FAERS Safety Report 17623279 (Version 1)
Quarter: 2020Q2

REPORT INFORMATION
  Report Type: Spontaneous
  Country: US (occurrence: US)
  Receive Date: 20200403
  Receipt Date: 20200403
  Transmission Date: 20200713
  Serious: Yes (Other)
  Sender: FDA-Public Use
  Company Number: None

PATIENT
  Age: 54 Year
  Sex: Female
  Weight: 85.5 kg

DRUGS (13)
  1. METFORMIN [Concomitant]
     Active Substance: METFORMIN HYDROCHLORIDE
  2. ESTRADIOL TRANSDERMAL SYSTEM [Suspect]
     Active Substance: ESTRADIOL
     Indication: MENOPAUSE
     Dosage: ?          QUANTITY:1 PATCH(ES);OTHER FREQUENCY:EVERY WEEK;?
     Route: 062
     Dates: start: 20191117, end: 20200403
  3. LANSOPRAZOLE 30 MG [Concomitant]
     Active Substance: LANSOPRAZOLE
  4. MVI(CENTRUM SILVER EQUIVALENT) [Concomitant]
  5. LEVOTHYROXINE 75 MCG [Concomitant]
     Active Substance: LEVOTHYROXINE
  6. ESTRADIOL TRANSDERMAL SYSTEM [Concomitant]
     Active Substance: ESTRADIOL
  7. MICRONIZED PROGESTERONE [Concomitant]
  8. PROPRANOLOL ER [Concomitant]
     Active Substance: PROPRANOLOL HYDROCHLORIDE
  9. VITAMIN D3 [Concomitant]
     Active Substance: CHOLECALCIFEROL
  10. FISH OIL 2000 MG [Concomitant]
  11. QUETIAPINE. [Concomitant]
     Active Substance: QUETIAPINE
  12. ROSUVASTATIN 10 MG [Concomitant]
     Active Substance: ROSUVASTATIN
  13. GLUCOSAMINE/CHONDROITIN [Concomitant]

REACTIONS (2)
  - Product adhesion issue [None]
  - Vaginal haemorrhage [None]

NARRATIVE: CASE EVENT DATE: 20200403
